FAERS Safety Report 18094309 (Version 1)
Quarter: 2020Q3

REPORT INFORMATION
  Report Type: Spontaneous
  Country: ES (occurrence: ES)
  Receive Date: 20200730
  Receipt Date: 20200730
  Transmission Date: 20201103
  Serious: Yes (Other)
  Sender: FDA-Public Use
  Company Number: ES-PFIZER INC-2020286862

PATIENT
  Age: 40 Year
  Sex: Male
  Weight: 90 kg

DRUGS (21)
  1. AERO RED [Concomitant]
     Active Substance: DIMETHICONE
     Dosage: UNK
  2. DEXAMETHASONE. [Suspect]
     Active Substance: DEXAMETHASONE
     Indication: ACUTE LYMPHOCYTIC LEUKAEMIA
     Dosage: 16 MG, DAILY
     Route: 042
     Dates: start: 20200617, end: 20200701
  3. DEXAMETHASONE. [Suspect]
     Active Substance: DEXAMETHASONE
     Dosage: 4 MG, DAILY
     Route: 042
     Dates: start: 20200708, end: 20200714
  4. CYTARABINE. [Concomitant]
     Active Substance: CYTARABINE
     Dosage: 30 MG, 3X/DAY
     Route: 037
     Dates: start: 20200617
  5. LORMETAZEPAM [Concomitant]
     Active Substance: LORMETAZEPAM
     Dosage: UNK
  6. ALOPURINOL [Concomitant]
     Active Substance: ALLOPURINOL
     Dosage: UNK
     Dates: start: 202006
  7. DEXAMETHASONE. [Suspect]
     Active Substance: DEXAMETHASONE
     Dosage: 4 MG, DAILY
     Route: 042
  8. LACTULOSE. [Concomitant]
     Active Substance: LACTULOSE
     Dosage: UNK
  9. PARACETAMOL [Concomitant]
     Active Substance: ACETAMINOPHEN
     Dosage: UNK
     Dates: start: 202006
  10. DAUNORUBICIN HCL [Suspect]
     Active Substance: DAUNORUBICIN HYDROCHLORIDE
     Indication: ACUTE LYMPHOCYTIC LEUKAEMIA
     Dosage: 90 MG, DAILY (ON DAYS 1, 2 AND 3 OF THE CYCLE)
     Route: 042
     Dates: start: 20200617, end: 20200619
  11. ONCASPAR [Suspect]
     Active Substance: PEGASPARGASE
     Indication: ACUTE LYMPHOCYTIC LEUKAEMIA
     Dosage: 3000 IU, SINGLE
     Route: 041
     Dates: start: 20200701, end: 20200701
  12. PIPERACILLIN/TAZOBACTAM [Concomitant]
     Active Substance: PIPERACILLIN SODIUM\TAZOBACTAM SODIUM
     Dosage: UNK
     Dates: start: 202006
  13. ACICLOVIR [Concomitant]
     Active Substance: ACYCLOVIR
     Dosage: UNK
     Dates: start: 202006
  14. METHOTREXATE. [Concomitant]
     Active Substance: METHOTREXATE
     Dosage: 12 MG, 3X/DAY
     Route: 037
     Dates: start: 20200617
  15. HYDROCORTISONE. [Concomitant]
     Active Substance: HYDROCORTISONE
     Dosage: 20 MG, 3X/DAY
     Route: 037
     Dates: start: 20200617
  16. SEPTRIN [Concomitant]
     Active Substance: SULFAMETHOXAZOLE\TRIMETHOPRIM
     Dosage: UNK
  17. VINCRISTINE SULFATE. [Suspect]
     Active Substance: VINCRISTINE SULFATE
     Indication: ACUTE LYMPHOCYTIC LEUKAEMIA
     Dosage: 2 MG, WEEKLY (ON DAYS 1, 8, 15 AND 22)
     Route: 042
     Dates: start: 20200617, end: 20200708
  18. DEXAMETHASONE. [Suspect]
     Active Substance: DEXAMETHASONE
     Dosage: 8 MG, DAILY
     Route: 042
     Dates: start: 20200702, end: 20200707
  19. ONCASPAR [Suspect]
     Active Substance: PEGASPARGASE
     Dosage: 3000 IU, SINGLE
     Route: 041
     Dates: start: 20200715, end: 20200715
  20. ACFOL [Concomitant]
     Active Substance: FOLIC ACID
     Dosage: UNK
  21. BISACODYL. [Concomitant]
     Active Substance: BISACODYL
     Dosage: UNK

REACTIONS (1)
  - Hepatotoxicity [Not Recovered/Not Resolved]

NARRATIVE: CASE EVENT DATE: 20200713
